FAERS Safety Report 4796201-3 (Version None)
Quarter: 2005Q4

REPORT INFORMATION
  Report Type: 
  Country: None (occurrence: None)
  Receive Date: 20051007
  Receipt Date: 20050928
  Transmission Date: 20060501
  Serious: Yes (Hospitalization)
  Sender: FDA-Public Use
  Company Number: 163-20785-05090384

PATIENT
  Age: 67 Year
  Sex: Female
  Weight: 63.5036 kg

DRUGS (7)
  1. THALOMID [Suspect]
     Indication: LUMBAR SPINAL STENOSIS
     Dosage: 100 MG, QD, ORAL
     Route: 048
     Dates: start: 20050824, end: 20050927
  2. LIPITOR [Concomitant]
  3. ALBUTEROL INHALER (SALBUTAMOL) [Concomitant]
  4. CLONAZEPAM [Concomitant]
  5. HYDROCHLOROTHIAZIDE [Concomitant]
  6. METHOCARBAMOL [Concomitant]
  7. ALTACE [Concomitant]

REACTIONS (22)
  - AGITATION [None]
  - ASTHENIA [None]
  - BLOOD GLUCOSE INCREASED [None]
  - BLOOD PRESSURE SYSTOLIC DECREASED [None]
  - BLOOD UREA INCREASED [None]
  - BODY TEMPERATURE INCREASED [None]
  - CHEST DISCOMFORT [None]
  - CHILLS [None]
  - CHRONIC OBSTRUCTIVE PULMONARY DISEASE [None]
  - DILATATION ATRIAL [None]
  - DIZZINESS [None]
  - ELECTROCARDIOGRAM ST SEGMENT DEPRESSION [None]
  - FIBRIN D DIMER INCREASED [None]
  - HYPERHIDROSIS [None]
  - LEUKOCYTOSIS [None]
  - LUNG INFILTRATION [None]
  - NAUSEA [None]
  - OXYGEN SATURATION DECREASED [None]
  - PYREXIA [None]
  - QRS AXIS ABNORMAL [None]
  - RESPIRATORY FAILURE [None]
  - TACHYCARDIA [None]
